FAERS Safety Report 8378984-9 (Version None)
Quarter: 2012Q2

REPORT INFORMATION
  Report Type: 
  Country: None (occurrence: None)
  Receive Date: 20120522
  Receipt Date: 20120522
  Transmission Date: 20120825
  Serious: Yes (Other)
  Sender: FDA-Public Use
  Company Number: None

PATIENT
  Age: 77 Year
  Sex: Female
  Weight: 86.1834 kg

DRUGS (1)
  1. HYDROXYCHLOROQUINE SULFATE [Suspect]
     Dosage: 2XDAY  FEB. 21 TO APRIL 2

REACTIONS (5)
  - SLEEP DISORDER [None]
  - EMOTIONAL DISORDER [None]
  - TREMOR [None]
  - PAIN [None]
  - FEELING ABNORMAL [None]
